FAERS Safety Report 4597997-6 (Version None)
Quarter: 2005Q1

REPORT INFORMATION
  Report Type: 
  Country: None (occurrence: None)
  Receive Date: 20050210
  Receipt Date: 20041101
  Transmission Date: 20050727
  Serious: Yes (Death)
  Sender: FDA-Public Use
  Company Number: 04P-163-0279404-00

PATIENT
  Age: 69 Year
  Sex: Female

DRUGS (5)
  1. TRICOR [Suspect]
     Indication: BLOOD CHOLESTEROL INCREASED
     Dosage: 1 IN 1 D, PER ORAL
     Route: 048
     Dates: start: 20040301
  2. INSULIN [Concomitant]
  3. METOPROLOL SUCCINATE [Concomitant]
  4. NITROGLYCERIN [Concomitant]
  5. ALPRAZOLAM [Concomitant]

REACTIONS (1)
  - DEATH [None]
